FAERS Safety Report 5413455-0 (Version None)
Quarter: 2007Q3

REPORT INFORMATION
  Report Type: 
  Country: None (occurrence: None)
  Receive Date: 20070809
  Receipt Date: 20070809
  Transmission Date: 20080115
  Serious: Yes (Disabling)
  Sender: FDA-Public Use
  Company Number: None

PATIENT
  Sex: Male
  Weight: 72.5755 kg

DRUGS (1)
  1. PROMETHAZINE HCL [Suspect]
     Indication: NAUSEA
     Dosage: 25MG ONCE IV
     Route: 042
     Dates: start: 20070803, end: 20070803

REACTIONS (1)
  - INFUSION SITE EXTRAVASATION [None]
